FAERS Safety Report 16420692 (Version 1)
Quarter: 2019Q3

REPORT INFORMATION
  Report Type: Spontaneous
  Country: US (occurrence: US)
  Receive Date: 20190611
  Receipt Date: 20190611
  Transmission Date: 20191004
  Serious: Yes (Hospitalization)
  Sender: FDA-Public Use
  Company Number: None

PATIENT
  Age: 9 Year
  Sex: Female

DRUGS (1)
  1. LUPRON DEPOT [Suspect]
     Active Substance: LEUPROLIDE ACETATE
     Indication: HYPERPITUITARISM
     Dosage: ?          OTHER FREQUENCY:EVERY 21 DAYS;?
     Route: 030

REACTIONS (4)
  - Hypersensitivity [None]
  - Therapy cessation [None]
  - Tonsillectomy [None]
  - Haemorrhage [None]

NARRATIVE: CASE EVENT DATE: 20190610
